FAERS Safety Report 9978131 (Version 2)
Quarter: 2014Q1

REPORT INFORMATION
  Report Type: Spontaneous
  Country: US (occurrence: US)
  Receive Date: 20140306
  Receipt Date: 20140331
  Transmission Date: 20141002
  Serious: No
  Sender: FDA-Public Use
  Company Number: US-PFIZER INC-2014065228

PATIENT
  Age: 57 Year
  Sex: Male
  Weight: 83.9 kg

DRUGS (4)
  1. LYRICA [Suspect]
     Indication: FIBROMYALGIA
     Dosage: UNK
     Dates: end: 2014
  2. LYRICA [Suspect]
     Indication: PAIN
  3. OXYCONTIN [Concomitant]
     Indication: PAIN
     Dosage: 10 MG, EVERY 3 HOURS
  4. MORPHINE [Concomitant]
     Indication: PAIN
     Dosage: 15 MG, 2X/DAY

REACTIONS (3)
  - Psoriasis [Unknown]
  - Pain of skin [Unknown]
  - Skin irritation [Unknown]
